FAERS Safety Report 7350668 (Version 7)
Quarter: 2015Q3

REPORT INFORMATION
  Report Type: Report from Study
  Country: CA (occurrence: CA)
  Receive Date: 20100409
  Receipt Date: 20150817
  Transmission Date: 20151125
  Serious: Yes (Hospitalization, Other)
  Sender: FDA-Public Use
  Company Number: PHHY2010CA19864

PATIENT
  Age: 43 Year
  Sex: Male

DRUGS (2)
  1. SANDOSTATIN LAR DEPOT [Suspect]
     Active Substance: OCTREOTIDE ACETATE
     Indication: ACROMEGALY
     Dosage: 20 MG, QMO
     Route: 030
     Dates: start: 20070629
  2. SANDOSTATIN LAR DEPOT [Suspect]
     Active Substance: OCTREOTIDE ACETATE
     Dosage: 30 MG,QMO (EVERY 4 WEEKS)
     Route: 030

REACTIONS (11)
  - Ear discomfort [Unknown]
  - Vertigo [Unknown]
  - Headache [Unknown]
  - Neoplasm [Unknown]
  - Heart rate increased [Unknown]
  - Vomiting [Unknown]
  - Balance disorder [Unknown]
  - Suicidal ideation [Unknown]
  - Paranasal sinus hypersecretion [Unknown]
  - Neoplasm progression [Unknown]
  - Blood pressure increased [Unknown]

NARRATIVE: CASE EVENT DATE: 20120918
